FAERS Safety Report 9990855 (Version 1)
Quarter: 2014Q1

REPORT INFORMATION
  Report Type: Spontaneous
  Country: US (occurrence: None)
  Receive Date: 20140307
  Receipt Date: 20140307
  Transmission Date: 20141002
  Serious: No
  Sender: FDA-Public Use
  Company Number: None

PATIENT
  Age: 77 Year
  Sex: Male
  Weight: 68 kg

DRUGS (1)
  1. METHOTREXATE [Suspect]
     Indication: LYMPHOMA
     Dosage: 4.5366M, ONE, IV
     Route: 042
     Dates: start: 20130912

REACTIONS (1)
  - Blood creatinine increased [None]
